FAERS Safety Report 5350866-6 (Version None)
Quarter: 2007Q2

REPORT INFORMATION
  Report Type: 
  Country: None (occurrence: None)
  Receive Date: 20070608
  Receipt Date: 20070529
  Transmission Date: 20071010
  Serious: Yes (Hospitalization)
  Sender: FDA-Public Use
  Company Number: B0465260A

PATIENT
  Age: 28 Year
  Sex: Female
  Weight: 66 kg

DRUGS (3)
  1. DEROXAT [Suspect]
     Indication: AGORAPHOBIA
     Dosage: 20MG PER DAY
     Route: 048
     Dates: start: 20050307
  2. GAVISCON [Suspect]
  3. IRON [Suspect]

REACTIONS (5)
  - ANAEMIA [None]
  - PREGNANCY [None]
  - PREMATURE BABY [None]
  - RED BLOOD CELLS URINE POSITIVE [None]
  - WHITE BLOOD CELLS URINE [None]
